FAERS Safety Report 7169534-3 (Version None)
Quarter: 2010Q4

REPORT INFORMATION
  Report Type: 
  Country: None (occurrence: None)
  Receive Date: 20101217
  Receipt Date: 20101208
  Transmission Date: 20110411
  Serious: Yes (Death)
  Sender: FDA-Public Use
  Company Number: US-CELGENEUS-163-21880-10121006

PATIENT
  Age: 79 Year
  Sex: Female

DRUGS (9)
  1. REVLIMID [Suspect]
     Indication: MULTIPLE MYELOMA
     Route: 048
     Dates: start: 20090901, end: 20100401
  2. REVLIMID [Suspect]
     Route: 048
     Dates: start: 20100501, end: 20100601
  3. ROXANOL [Concomitant]
     Route: 065
  4. ATARAX [Concomitant]
     Route: 065
  5. DIGOXIN [Concomitant]
     Route: 065
  6. ATENOLOL [Concomitant]
     Route: 065
  7. COLACE [Concomitant]
     Route: 065
  8. OMEPRAZOLE [Concomitant]
     Route: 065
  9. POTASSIUM [Concomitant]
     Route: 048

REACTIONS (1)
  - DEATH [None]
